FAERS Safety Report 13449773 (Version 1)
Quarter: 2017Q2

REPORT INFORMATION
  Report Type: Spontaneous
  Country: US (occurrence: US)
  Receive Date: 20170417
  Receipt Date: 20170417
  Transmission Date: 20170830
  Serious: No
  Sender: FDA-Public Use
  Company Number: US-BANPHARM-20164751

PATIENT
  Sex: Female
  Weight: 77.11 kg

DRUGS (2)
  1. FISH OIL [Concomitant]
     Active Substance: FISH OIL
  2. ALEVE [Suspect]
     Active Substance: NAPROXEN SODIUM
     Dosage: 1 DF, PRN,
     Route: 048
     Dates: start: 201512, end: 20160308

REACTIONS (1)
  - Product quality issue [Unknown]
